FAERS Safety Report 22907509 (Version 7)
Quarter: 2023Q4

REPORT INFORMATION
  Report Type: Spontaneous
  Country: US (occurrence: US)
  Receive Date: 20230905
  Receipt Date: 20231201
  Transmission Date: 20240110
  Serious: Yes (Other)
  Sender: FDA-Public Use
  Company Number: US-PFIZER INC-PV202300089798

PATIENT
  Age: 44 Year
  Sex: Male

DRUGS (2)
  1. XELJANZ XR [Suspect]
     Active Substance: TOFACITINIB CITRATE
     Dosage: 22 MG
  2. XELJANZ XR [Suspect]
     Active Substance: TOFACITINIB CITRATE
     Dosage: 11 MG

REACTIONS (6)
  - Haematochezia [Unknown]
  - Haemorrhage [Unknown]
  - Intentional dose omission [Unknown]
  - Illness [Not Recovered/Not Resolved]
  - Depressed mood [Unknown]
  - Abdominal pain upper [Not Recovered/Not Resolved]
